FAERS Safety Report 7284954-4 (Version None)
Quarter: 2011Q1

REPORT INFORMATION
  Report Type: 
  Country: None (occurrence: None)
  Receive Date: 20110210
  Receipt Date: 20101202
  Transmission Date: 20110831
  Serious: No
  Sender: FDA-Public Use
  Company Number: US-BAYER-2010-005895

PATIENT
  Age: 34 Year
  Sex: Female

DRUGS (1)
  1. NATAZIA [Suspect]
     Indication: ORAL CONTRACEPTION
     Dosage: UNK UNK, QD
     Dates: start: 20100801

REACTIONS (4)
  - MIGRAINE [None]
  - WEIGHT INCREASED [None]
  - ALOPECIA [None]
  - ACNE [None]
